FAERS Safety Report 8471647-0 (Version None)
Quarter: 2012Q2

REPORT INFORMATION
  Report Type: 
  Country: None (occurrence: None)
  Receive Date: 20120627
  Receipt Date: 20120618
  Transmission Date: 20120825
  Serious: Yes (Other)
  Sender: FDA-Public Use
  Company Number: GB-ABBOTT-12P-167-0947562-00

PATIENT
  Sex: Male

DRUGS (1)
  1. HUMIRA [Suspect]
     Indication: CROHN'S DISEASE
     Route: 058

REACTIONS (6)
  - DYSURIA [None]
  - DIZZINESS [None]
  - HYPOPHAGIA [None]
  - CROHN'S DISEASE [None]
  - PYREXIA [None]
  - POOR QUALITY SLEEP [None]
